FAERS Safety Report 25777020 (Version 1)
Quarter: 2025Q3

REPORT INFORMATION
  Report Type: Spontaneous
  Country: US (occurrence: US)
  Receive Date: 20250909
  Receipt Date: 20250909
  Transmission Date: 20251021
  Serious: No
  Sender: DOMPE FARMACEUTICI
  Company Number: US-FARMAPROD-202409-3355

PATIENT
  Age: 69 Year
  Sex: Female

DRUGS (3)
  1. OXERVATE [Suspect]
     Active Substance: CENEGERMIN-BKBJ
     Indication: Neurotrophic keratopathy
     Route: 047
     Dates: start: 20240920
  2. EYSUVIS [Concomitant]
     Active Substance: LOTEPREDNOL ETABONATE
  3. FISH OIL [Concomitant]
     Active Substance: FISH OIL

REACTIONS (5)
  - Ocular hyperaemia [Not Recovered/Not Resolved]
  - Eye pain [Not Recovered/Not Resolved]
  - Eye haemorrhage [Unknown]
  - Hordeolum [Unknown]
  - Eye infection [Unknown]

NARRATIVE: CASE EVENT DATE: 20240921
